FAERS Safety Report 20124443 (Version 1)
Quarter: 2021Q4

REPORT INFORMATION
  Report Type: Spontaneous
  Country: CA (occurrence: CA)
  Receive Date: 20211129
  Receipt Date: 20211129
  Transmission Date: 20220303
  Serious: Yes (Other)
  Sender: FDA-Public Use
  Company Number: CA-TEVA-2021-CA-1980672

PATIENT
  Sex: Female

DRUGS (1)
  1. PREDNISONE [Suspect]
     Active Substance: PREDNISONE
     Route: 065

REACTIONS (3)
  - Rectal haemorrhage [Unknown]
  - Fatigue [Unknown]
  - Drug intolerance [Unknown]
